FAERS Safety Report 4788853-9 (Version None)
Quarter: 2005Q4

REPORT INFORMATION
  Report Type: 
  Country: None (occurrence: None)
  Receive Date: 20051004
  Receipt Date: 20050922
  Transmission Date: 20060501
  Serious: No
  Sender: FDA-Public Use
  Company Number: 2005-132347-NL

PATIENT
  Age: 54 Year
  Sex: Female

DRUGS (1)
  1. DEXAMETHASONE [Suspect]
     Indication: INTRACRANIAL PRESSURE INCREASED
     Dosage: 6 MG, ORAL
     Route: 048
     Dates: start: 20050729

REACTIONS (1)
  - PSYCHOMOTOR HYPERACTIVITY [None]
